FAERS Safety Report 9363370 (Version 2)
Quarter: 2013Q3

REPORT INFORMATION
  Report Type: Spontaneous
  Country: US (occurrence: US)
  Receive Date: 20130624
  Receipt Date: 20130829
  Transmission Date: 20140515
  Serious: Yes (Other)
  Sender: FDA-Public Use
  Company Number: US-JNJFOC-20130609350

PATIENT
  Age: 43 Year
  Sex: Female
  Weight: 77.7 kg

DRUGS (4)
  1. EDURANT [Suspect]
     Indication: DRUG LEVEL
     Route: 048
     Dates: start: 20130227, end: 20130312
  2. ABT-450/RITONAVIR [Suspect]
     Indication: DRUG LEVEL
     Dosage: 150 MG / 100 MG
     Route: 048
     Dates: start: 20130213, end: 20130312
  3. ABT-333 [Suspect]
     Indication: DRUG LEVEL
     Route: 048
     Dates: start: 20130213, end: 20130312
  4. ABT-267 [Suspect]
     Indication: DRUG LEVEL
     Route: 048
     Dates: start: 20130213, end: 20130312

REACTIONS (2)
  - Abortion spontaneous [Recovered/Resolved]
  - Exposure during pregnancy [Recovered/Resolved]
